FAERS Safety Report 25902805 (Version 2)
Quarter: 2025Q4

REPORT INFORMATION
  Report Type: Report from Study
  Country: US (occurrence: US)
  Receive Date: 20251009
  Receipt Date: 20251111
  Transmission Date: 20260117
  Serious: Yes (Hospitalization, Other)
  Sender: APELLIS PHARMACEUTICALS
  Company Number: US-APELLIS-2025-APL-0001720

PATIENT
  Weight: 78.5 kg

DRUGS (13)
  1. PEGCETACOPLAN [Suspect]
     Active Substance: PEGCETACOPLAN
     Indication: C3 glomerulopathy
     Dosage: INFUSE 1080 MG SUBCUTANEOUSLY TWICE WEEKLY AS DIRECTED.
     Route: 058
     Dates: start: 20250910, end: 20250930
  2. PEGCETACOPLAN [Suspect]
     Active Substance: PEGCETACOPLAN
     Indication: C3 glomerulopathy
     Dosage: INFUSE 1080 MG SUBCUTANEOUSLY TWICE WEEKLY AS DIRECTED.
     Route: 058
     Dates: start: 20250910, end: 20250930
  3. PEGCETACOPLAN [Suspect]
     Active Substance: PEGCETACOPLAN
     Dosage: INFUSE 1080 MG SUBCUTANEOUSLY TWICE WEEKLY AS DIRECTED
     Route: 058
     Dates: end: 20251006
  4. BACTRIM [Concomitant]
     Active Substance: SULFAMETHOXAZOLE\TRIMETHOPRIM
     Indication: Prophylaxis
     Dosage: 400-800MG
     Dates: start: 20250825, end: 20250909
  5. VITAMIN D3 [Concomitant]
     Active Substance: CHOLECALCIFEROL
     Indication: Vitamin D
     Dosage: 25 MCG
     Dates: start: 20250308
  6. PREDNISONE [Concomitant]
     Active Substance: PREDNISONE
     Indication: Oedema
     Dosage: 10.000MG
     Dates: start: 20250223
  7. FUROSEMIDE [Concomitant]
     Active Substance: FUROSEMIDE
     Indication: Oedema
     Dosage: 10MG/ML
     Dates: start: 20250227
  8. FAMOTIDINE [Concomitant]
     Active Substance: FAMOTIDINE
     Indication: Gastrointestinal haemorrhage
     Dosage: 20.000MG
     Dates: start: 20250227
  9. MYCOPHENOLIC ACID [Concomitant]
     Active Substance: MYCOPHENOLIC ACID
     Indication: Proteinuria
     Dosage: 250.000MG
     Dates: start: 20250314, end: 20250819
  10. LISINOPRIL [Concomitant]
     Active Substance: LISINOPRIL
     Indication: Proteinuria
     Dosage: 10.000MG
     Dates: start: 20250227
  11. PEPCID [Concomitant]
     Active Substance: FAMOTIDINE
     Indication: Product used for unknown indication
  12. CELLCEPT [Concomitant]
     Active Substance: MYCOPHENOLATE MOFETIL
     Indication: Product used for unknown indication
  13. AMOXICILLIN [Concomitant]
     Active Substance: AMOXICILLIN
     Indication: Product used for unknown indication
     Dosage: 250.000MG

REACTIONS (22)
  - Pleural effusion [Unknown]
  - Abdominal distension [Not Recovered/Not Resolved]
  - Swelling face [Not Recovered/Not Resolved]
  - Swelling [Not Recovered/Not Resolved]
  - Renal disorder [Unknown]
  - Condition aggravated [Unknown]
  - Swelling [Not Recovered/Not Resolved]
  - Abdominal pain upper [Recovered/Resolved]
  - Blood creatinine increased [Not Recovered/Not Resolved]
  - Renal injury [Unknown]
  - Biopsy kidney abnormal [Unknown]
  - Condition aggravated [Unknown]
  - Dysphonia [Recovered/Resolved]
  - Injection site pruritus [Recovered/Resolved]
  - Dysphonia [Recovering/Resolving]
  - Cough [Unknown]
  - Diarrhoea [Recovered/Resolved]
  - Protein total increased [Not Recovered/Not Resolved]
  - Peripheral swelling [Unknown]
  - Disease progression [Unknown]
  - Acute kidney injury [Unknown]
  - Adverse drug reaction [Unknown]

NARRATIVE: CASE EVENT DATE: 20250909
